FAERS Safety Report 14241051 (Version 1)
Quarter: 2017Q4

REPORT INFORMATION
  Report Type: Spontaneous
  Country: US (occurrence: US)
  Receive Date: 20171130
  Receipt Date: 20171130
  Transmission Date: 20180321
  Serious: No
  Sender: FDA-Public Use
  Company Number: US-LEADIANT BIOSCIENCES INC-2017STPI000402

PATIENT
  Age: 43 Year
  Sex: Female

DRUGS (7)
  1. MATULANE [Suspect]
     Active Substance: PROCARBAZINE HYDROCHLORIDE
     Indication: BRAIN NEOPLASM MALIGNANT
     Dosage: 100 MG, UNK
     Route: 048
     Dates: start: 20161219
  2. KLONOPIN [Concomitant]
     Active Substance: CLONAZEPAM
  3. LEXAPRO [Concomitant]
     Active Substance: ESCITALOPRAM OXALATE
  4. TYLENOL [Concomitant]
     Active Substance: ACETAMINOPHEN
  5. LAMICTAL [Concomitant]
     Active Substance: LAMOTRIGINE
  6. VITAMIN D3 [Concomitant]
     Active Substance: CHOLECALCIFEROL
  7. KEPPRA                      /00955301/ [Concomitant]

REACTIONS (1)
  - Hypersensitivity [Not Recovered/Not Resolved]

NARRATIVE: CASE EVENT DATE: 20161219
